FAERS Safety Report 25867922 (Version 1)
Quarter: 2025Q4

REPORT INFORMATION
  Report Type: Spontaneous
  Country: US (occurrence: US)
  Receive Date: 20251001
  Receipt Date: 20251001
  Transmission Date: 20260118
  Serious: Yes (Hospitalization)
  Sender: LAVIPHARM
  Company Number: US-Lavipharm SA-2185676

PATIENT
  Age: 64 Year
  Sex: Female

DRUGS (4)
  1. CLONIDINE TRANSDERMAL SYSTEM [Suspect]
     Active Substance: CLONIDINE
     Indication: Hypertension
     Dates: start: 20250803
  2. VALIUM [Concomitant]
     Active Substance: DIAZEPAM
  3. CLONIDINE [Suspect]
     Active Substance: CLONIDINE
     Dates: start: 20250903, end: 20250910
  4. CLONIDINE [Suspect]
     Active Substance: CLONIDINE
     Dates: start: 20250829

REACTIONS (6)
  - Anxiety [Not Recovered/Not Resolved]
  - Nervousness [Not Recovered/Not Resolved]
  - Blood pressure increased [Not Recovered/Not Resolved]
  - Heart rate increased [Not Recovered/Not Resolved]
  - Musculoskeletal pain [Not Recovered/Not Resolved]
  - Constipation [Not Recovered/Not Resolved]

NARRATIVE: CASE EVENT DATE: 20250801
